FAERS Safety Report 19196597 (Version 1)
Quarter: 2021Q2

REPORT INFORMATION
  Report Type: Report from Study
  Country: ES (occurrence: ES)
  Receive Date: 20210429
  Receipt Date: 20210429
  Transmission Date: 20210717
  Serious: Yes (Hospitalization)
  Sender: FDA-Public Use
  Company Number: ES-TAKEDA-ES201603230

PATIENT

DRUGS (1)
  1. IDURSULFASE [Suspect]
     Active Substance: IDURSULFASE
     Indication: MUCOPOLYSACCHARIDOSIS II
     Dosage: 0.5 MG/KG (ALTERNATING WITH 0.39 MG/KG), 1X/WEEK
     Route: 041
     Dates: start: 20061220

REACTIONS (2)
  - Drug eruption [Recovered/Resolved]
  - Carpal tunnel decompression [Recovered/Resolved]

NARRATIVE: CASE EVENT DATE: 20070215
